FAERS Safety Report 6556375-0 (Version None)
Quarter: 2010Q1

REPORT INFORMATION
  Report Type: 
  Country: None (occurrence: None)
  Receive Date: 20100128
  Receipt Date: 20100120
  Transmission Date: 20100710
  Serious: Yes (Other)
  Sender: FDA-Public Use
  Company Number: GXKR2008GB11423

PATIENT
  Age: 30 Year
  Sex: Female
  Weight: 22 kg

DRUGS (3)
  1. CITALOPRAM HYDROBROMIDE [Suspect]
     Indication: DEPRESSION
     Dosage: 30 MG
     Route: 065
     Dates: start: 20080110
  2. FERROUS SULFATE TAB [Concomitant]
     Indication: ANAEMIA
     Dosage: 200 MG, TID
     Route: 065
     Dates: start: 20080831, end: 20081103
  3. FERROUS SULFATE TAB [Concomitant]
     Indication: PREGNANCY

REACTIONS (2)
  - DRUG EXPOSURE DURING PREGNANCY [None]
  - INTRA-UTERINE DEATH [None]
